FAERS Safety Report 21510280 (Version 3)
Quarter: 2024Q1

REPORT INFORMATION
  Report Type: Report from Study
  Country: US (occurrence: US)
  Receive Date: 20221026
  Receipt Date: 20240308
  Transmission Date: 20240410
  Serious: Yes (Other)
  Sender: FDA-Public Use
  Company Number: US-JAZZ-2022-US-029206

PATIENT
  Age: 46 Year
  Sex: Male

DRUGS (40)
  1. XYWAV [Suspect]
     Active Substance: CALCIUM OXYBATE\MAGNESIUM OXYBATE\POTASSIUM OXYBATE\SODIUM OXYBATE
     Indication: Narcolepsy
     Dosage: 3.5 GRAM, BID, NIGHTLY
     Route: 048
  2. XYWAV [Suspect]
     Active Substance: CALCIUM OXYBATE\MAGNESIUM OXYBATE\POTASSIUM OXYBATE\SODIUM OXYBATE
     Indication: Cataplexy
     Dosage: 4 GRAM, BID, NIGHTLY
     Route: 048
  3. XYWAV [Suspect]
     Active Substance: CALCIUM OXYBATE\MAGNESIUM OXYBATE\POTASSIUM OXYBATE\SODIUM OXYBATE
     Indication: Somnolence
     Dosage: UNK
     Dates: start: 202310
  4. DESVENLAFAXINE FUMARATE [Concomitant]
     Active Substance: DESVENLAFAXINE FUMARATE
     Indication: Product used for unknown indication
     Dosage: UNK
     Dates: start: 20220720
  5. TYLENOL [Concomitant]
     Active Substance: ACETAMINOPHEN
     Indication: Product used for unknown indication
     Dosage: 500 MILLIGRAM, CAPLET
     Dates: start: 20220914
  6. TESTOSTERONE [Concomitant]
     Active Substance: TESTOSTERONE
     Indication: Product used for unknown indication
     Dosage: 4 PUMPS A DAY
     Dates: start: 20221026
  7. ARMODAFINIL [Concomitant]
     Active Substance: ARMODAFINIL
     Indication: Product used for unknown indication
     Dosage: UNK
  8. ARMODAFINIL [Concomitant]
     Active Substance: ARMODAFINIL
     Dosage: UNK
  9. ARMODAFINIL [Concomitant]
     Active Substance: ARMODAFINIL
     Dosage: UNK
  10. ARMODAFINIL [Concomitant]
     Active Substance: ARMODAFINIL
     Dosage: UNK
  11. ARMODAFINIL [Concomitant]
     Active Substance: ARMODAFINIL
     Dosage: UNK
  12. ARMODAFINIL [Concomitant]
     Active Substance: ARMODAFINIL
     Dosage: UNK
  13. ARMODAFINIL [Concomitant]
     Active Substance: ARMODAFINIL
     Dosage: UNK
  14. ARMODAFINIL [Concomitant]
     Active Substance: ARMODAFINIL
     Dosage: UNK
  15. ARMODAFINIL [Concomitant]
     Active Substance: ARMODAFINIL
     Dosage: UNK
  16. NAPROXEN [Concomitant]
     Active Substance: NAPROXEN
     Indication: Back disorder
     Dosage: UNK
  17. NAPROXEN [Concomitant]
     Active Substance: NAPROXEN
     Dosage: UNK
  18. NAPROXEN [Concomitant]
     Active Substance: NAPROXEN
     Dosage: UNK
  19. NAPROXEN [Concomitant]
     Active Substance: NAPROXEN
     Dosage: UNK
  20. NAPROXEN [Concomitant]
     Active Substance: NAPROXEN
     Dosage: UNK
  21. NAPROXEN [Concomitant]
     Active Substance: NAPROXEN
     Dosage: UNK
  22. NAPROXEN [Concomitant]
     Active Substance: NAPROXEN
     Dosage: UNK
  23. NAPROXEN [Concomitant]
     Active Substance: NAPROXEN
     Dosage: UNK
  24. NAPROXEN [Concomitant]
     Active Substance: NAPROXEN
     Dosage: UNK
  25. FLUDROCORTISONE [Concomitant]
     Active Substance: FLUDROCORTISONE
     Indication: Product used for unknown indication
     Dosage: UNK
  26. FLUDROCORTISONE [Concomitant]
     Active Substance: FLUDROCORTISONE
     Dosage: UNK
  27. FLUDROCORTISONE [Concomitant]
     Active Substance: FLUDROCORTISONE
     Dosage: UNK
  28. FLUDROCORTISONE [Concomitant]
     Active Substance: FLUDROCORTISONE
     Dosage: UNK
  29. FLUDROCORTISONE [Concomitant]
     Active Substance: FLUDROCORTISONE
     Dosage: UNK
  30. FLUDROCORTISONE [Concomitant]
     Active Substance: FLUDROCORTISONE
     Dosage: UNK
  31. FLUDROCORTISONE [Concomitant]
     Active Substance: FLUDROCORTISONE
     Dosage: UNK
  32. FLUDROCORTISONE [Concomitant]
     Active Substance: FLUDROCORTISONE
     Dosage: UNK
  33. FLUDROCORTISONE [Concomitant]
     Active Substance: FLUDROCORTISONE
     Dosage: UNK
  34. MELATONIN [Concomitant]
     Active Substance: MELATONIN
     Indication: Product used for unknown indication
     Dosage: UNK
     Dates: start: 20230203
  35. BUPROPION HYDROCHLORIDE XL [Concomitant]
     Active Substance: BUPROPION HYDROCHLORIDE
     Indication: Product used for unknown indication
     Dosage: UNK
     Dates: start: 20230726
  36. CYCLOBENZAPRINE [Concomitant]
     Active Substance: CYCLOBENZAPRINE
     Indication: Product used for unknown indication
     Dosage: UNK
     Dates: start: 20231021
  37. PROBIOTIC BLEND [Concomitant]
     Indication: Product used for unknown indication
     Dosage: UNK
     Dates: start: 20230923
  38. LATUDA [Concomitant]
     Active Substance: LURASIDONE HYDROCHLORIDE
     Indication: Product used for unknown indication
  39. DICLOFENAC [Concomitant]
     Active Substance: DICLOFENAC
     Indication: Bone pain
  40. FLONASE ALLERGY RELIEF [Concomitant]
     Active Substance: FLUTICASONE PROPIONATE
     Indication: Upper-airway cough syndrome

REACTIONS (11)
  - Rocky mountain spotted fever [Unknown]
  - Suicide attempt [Unknown]
  - Brain fog [Unknown]
  - Headache [Unknown]
  - Memory impairment [Unknown]
  - Arthropod bite [Unknown]
  - Hypersensitivity [Unknown]
  - Arthropod bite [Unknown]
  - Product complaint [Unknown]
  - Product administration interrupted [Unknown]
  - Intentional dose omission [Unknown]

NARRATIVE: CASE EVENT DATE: 20220601
